FAERS Safety Report 9381641 (Version 1)
Quarter: 2013Q3

REPORT INFORMATION
  Report Type: Spontaneous
  Country: CA (occurrence: CA)
  Receive Date: 20130703
  Receipt Date: 20130703
  Transmission Date: 20140515
  Serious: Yes (Other)
  Sender: FDA-Public Use
  Company Number: CA-PFIZER INC-2013194285

PATIENT
  Age: 57 Year
  Sex: Male

DRUGS (1)
  1. SOMAVERT [Suspect]
     Dosage: 30 MG, UNK

REACTIONS (1)
  - Heart rate decreased [Recovered/Resolved]
